FAERS Safety Report 24239131 (Version 1)
Quarter: 2024Q3

REPORT INFORMATION
  Report Type: Spontaneous
  Country: US (occurrence: None)
  Receive Date: 20240822
  Receipt Date: 20240822
  Transmission Date: 20241016
  Serious: Yes (Other)
  Sender: Public
  Company Number: None

PATIENT
  Age: 54 Year
  Sex: Male
  Weight: 84.6 kg

DRUGS (8)
  1. TOPIRAMATE [Suspect]
     Active Substance: TOPIRAMATE
     Indication: Weight decreased
     Dates: start: 20240701, end: 20240819
  2. METFORMIN [Concomitant]
     Active Substance: METFORMIN HYDROCHLORIDE
  3. SILDENAFIL [Concomitant]
     Active Substance: SILDENAFIL
  4. ATORVASTATIN [Concomitant]
     Active Substance: ATORVASTATIN
  5. BUPROPION [Concomitant]
     Active Substance: BUPROPION
  6. MELATONIN [Concomitant]
     Active Substance: MELATONIN
  7. VITAMINS [Concomitant]
     Active Substance: VITAMINS
  8. VITAMIN B12 [Suspect]
     Active Substance: CYANOCOBALAMIN

REACTIONS (1)
  - Nephrolithiasis [None]

NARRATIVE: CASE EVENT DATE: 20240818
